FAERS Safety Report 5403739-4 (Version None)
Quarter: 2007Q3

REPORT INFORMATION
  Report Type: 
  Country: None (occurrence: None)
  Receive Date: 20070802
  Receipt Date: 20070727
  Transmission Date: 20080115
  Serious: Yes (Other)
  Sender: FDA-Public Use
  Company Number: PHNU2007DE02692

PATIENT
  Sex: Male

DRUGS (4)
  1. LAMISIL [Suspect]
     Indication: ONYCHOMYCOSIS
     Route: 048
     Dates: start: 20060301, end: 20070201
  2. TWINRIX [Suspect]
     Dates: start: 20061101, end: 20061101
  3. TWINRIX [Suspect]
     Dates: start: 20060501, end: 20060501
  4. TWINRIX [Suspect]
     Dates: start: 20060601, end: 20060601

REACTIONS (3)
  - ANTIBODY TEST ABNORMAL [None]
  - DRUG INTERACTION [None]
  - HEPATIC ENZYME INCREASED [None]
